FAERS Safety Report 4723529-5 (Version None)
Quarter: 2005Q3

REPORT INFORMATION
  Report Type: 
  Country: None (occurrence: None)
  Receive Date: 20050720
  Receipt Date: 20050720
  Transmission Date: 20060218
  Serious: Yes (Hospitalization, Other)
  Sender: FDA-Public Use
  Company Number: None

PATIENT
  Age: 58 Year
  Sex: Male
  Weight: 76 kg

DRUGS (6)
  1. CYCLOSPORINE [Suspect]
     Indication: GRAFT VERSUS HOST DISEASE
     Dosage: 75 MG PO Q12H
     Route: 048
     Dates: start: 20050321
  2. CYCLOSPORINE [Suspect]
     Indication: PROPHYLAXIS
     Dosage: 75 MG PO Q12H
     Route: 048
     Dates: start: 20050321
  3. LISINOPRIL [Suspect]
     Indication: CARDIAC FAILURE CONGESTIVE
     Dosage: 20 MG PO DAILY
     Route: 048
  4. LISINOPRIL [Suspect]
     Indication: HYPERTENSION
     Dosage: 20 MG PO DAILY
     Route: 048
  5. SULFAMETHOXAZOLE + TRIMETHOPRIM [Suspect]
     Indication: INFECTION PROPHYLAXIS
     Dosage: 800 MG/160 MG PO Q 12H ON SATURDAY AND SUNDAY
     Route: 048
     Dates: start: 20050423
  6. SULFAMETHOXAZOLE + TRIMETHOPRIM [Suspect]
     Indication: INFECTION PROPHYLAXIS
     Dosage: 800 MG/160 MG PO Q 12H ON SATURDAY AND SUNDAY
     Route: 048
     Dates: start: 20050424

REACTIONS (4)
  - BLOOD CHLORIDE INCREASED [None]
  - BLOOD CREATININE INCREASED [None]
  - IMMUNOSUPPRESSANT DRUG LEVEL INCREASED [None]
  - RENAL TUBULAR ACIDOSIS [None]
